FAERS Safety Report 19483213 (Version 2)
Quarter: 2021Q3

REPORT INFORMATION
  Report Type: Spontaneous
  Country: US (occurrence: US)
  Receive Date: 20210701
  Receipt Date: 20210818
  Transmission Date: 20211014
  Serious: Yes (Life-Threatening, Hospitalization)
  Sender: FDA-Public Use
  Company Number: US-TEVA-2021-US-1927403

PATIENT
  Age: 70 Year
  Sex: Male

DRUGS (2)
  1. EPINEPHRINE. [Suspect]
     Active Substance: EPINEPHRINE
     Indication: PULSELESS ELECTRICAL ACTIVITY
     Route: 065
  2. EPINEPHRINE. [Suspect]
     Active Substance: EPINEPHRINE
     Indication: CARDIAC ARREST

REACTIONS (3)
  - Arteriospasm coronary [Recovered/Resolved]
  - Ventricular tachycardia [Recovered/Resolved]
  - Haemodynamic instability [Recovered/Resolved]
